FAERS Safety Report 9001898 (Version 1)
Quarter: 2013Q1

REPORT INFORMATION
  Report Type: Report from Study
  Country: PL (occurrence: PL)
  Receive Date: 20130107
  Receipt Date: 20130107
  Transmission Date: 20140127
  Serious: Yes (Hospitalization)
  Sender: FDA-Public Use
  Company Number: PL-ROCHE-1176916

PATIENT
  Sex: Female
  Weight: 65 kg

DRUGS (6)
  1. RITUXIMAB [Suspect]
     Indication: RHEUMATOID ARTHRITIS
     Route: 042
     Dates: start: 20110817, end: 20120323
  2. METHOTREXATE [Suspect]
     Indication: RHEUMATOID ARTHRITIS
     Route: 048
     Dates: start: 1990
  3. DICLOFENAC SODIUM [Suspect]
     Indication: RHEUMATOID ARTHRITIS
     Route: 048
     Dates: start: 1985
  4. OSTENIL (POLAND) [Concomitant]
     Indication: OSTEOPOROSIS
     Route: 048
     Dates: start: 2008
  5. METYPRED (POLAND) [Concomitant]
     Indication: RHEUMATOID ARTHRITIS
     Route: 048
     Dates: start: 2005
  6. NOLPAZA (POLAND) [Concomitant]
     Route: 048
     Dates: start: 2007

REACTIONS (1)
  - Hip arthroplasty [Recovered/Resolved]
